FAERS Safety Report 24643453 (Version 2)
Quarter: 2025Q1

REPORT INFORMATION
  Report Type: Spontaneous
  Country: US (occurrence: US)
  Receive Date: 20241120
  Receipt Date: 20250201
  Transmission Date: 20250408
  Serious: No
  Sender: SANOFI AVENTIS
  Company Number: US-SA-2024SA337479

PATIENT
  Age: 40 Year
  Sex: Male

DRUGS (2)
  1. DUPIXENT [Suspect]
     Active Substance: DUPILUMAB
     Indication: Eczema
     Route: 058
     Dates: start: 202409, end: 202409
  2. DUPIXENT [Suspect]
     Active Substance: DUPILUMAB
     Dosage: 300 MG, QOW
     Route: 058
     Dates: start: 202409, end: 202412

REACTIONS (7)
  - Injection site discomfort [Recovered/Resolved]
  - Hair colour changes [Recovering/Resolving]
  - Periorbital disorder [Recovering/Resolving]
  - Swelling [Recovered/Resolved]
  - Periorbital inflammation [Recovering/Resolving]
  - Infection [Unknown]
  - Scar [Unknown]

NARRATIVE: CASE EVENT DATE: 20240101
